FAERS Safety Report 6503611-2 (Version None)
Quarter: 2009Q4

REPORT INFORMATION
  Report Type: 
  Country: None (occurrence: None)
  Receive Date: 20091217
  Receipt Date: 20091207
  Transmission Date: 20100525
  Serious: Yes (Death, Other)
  Sender: FDA-Public Use
  Company Number: US-ELI_LILLY_AND_COMPANY-US200912001743

PATIENT
  Sex: Male

DRUGS (32)
  1. ZYPREXA [Suspect]
     Indication: AGITATION
     Dosage: 2.5 MG, UNK
     Route: 030
     Dates: start: 20091204, end: 20091204
  2. NORVASC [Concomitant]
     Dosage: 2.5 MG, UNK
     Dates: end: 20091202
  3. ANESTHETICS, GENERAL [Concomitant]
     Dates: start: 20091201
  4. ANTIBIOTICS [Concomitant]
     Indication: ANTIBIOTIC PROPHYLAXIS
     Dosage: 1 D/F, UNK
     Dates: start: 20091201
  5. ANTIBIOTICS [Concomitant]
     Dosage: 1 D/F, UNK
     Dates: start: 20091201
  6. ANTIBIOTICS [Concomitant]
     Dosage: 1 D/F, UNK
     Dates: start: 20091201
  7. DEXTROSE [Concomitant]
     Dates: start: 20091204
  8. D5NM [Concomitant]
     Dosage: 150 ML, UNK
  9. POTASSIUM [Concomitant]
     Dosage: 20 MG, UNK
  10. NEXIUM [Concomitant]
     Dosage: 40 MG, DAILY (1/D)
     Route: 048
  11. LASIX [Concomitant]
     Dosage: 40 MG, UNK
     Route: 042
     Dates: start: 20091204
  12. HALDOL /SCH/ [Concomitant]
     Indication: AGITATION
     Dosage: 1 MG, AS NEEDED
     Dates: start: 20091204
  13. LORTAB [Concomitant]
     Dosage: 1 D/F, UNK
     Route: 048
     Dates: start: 20091201
  14. HYDROCHLOROTHIAZIDE [Concomitant]
     Dosage: 1 D/F, UNK
     Dates: start: 20091201
  15. HYDROCHLOROTHIAZIDE [Concomitant]
     Dosage: 1 D/F, UNK
     Dates: start: 20091202
  16. XOPENEX [Concomitant]
     Dosage: 0.63 MG, 3/D
  17. SYNTHROID [Concomitant]
     Dosage: 175 UG, DAILY (1/D)
  18. LISINOPRIL [Concomitant]
     Dosage: 10 MG, DAILY (1/D)
     Dates: start: 20091201
  19. LISINOPRIL [Concomitant]
     Dosage: 10 MG, UNK
     Dates: start: 20091202
  20. LOPRESSOR [Concomitant]
     Dosage: 5 MG, UNK
     Route: 042
     Dates: start: 20091203
  21. NASAL SPRAY [Concomitant]
     Dosage: 1 D/F, 2/D
  22. MUPIROCIN [Concomitant]
     Route: 061
  23. OXYCONTIN [Concomitant]
     Dosage: 20 MG, 2/D
     Dates: start: 20091201
  24. OXYCONTIN [Concomitant]
     Dosage: 20 MG, 2/D
     Dates: start: 20091202
  25. PHENERGAN HCL [Concomitant]
     Dosage: 12.5 MG, UNK
     Route: 042
  26. NAROPIN [Concomitant]
     Dosage: 0.4 MG, EACH EVENING
  27. BUPIVACAINE [Concomitant]
     Dosage: 0.4 MG, EACH EVENING
  28. FLOMAX [Concomitant]
     Dosage: 0.4 MG, EACH EVENING
  29. SPIRIVA [Concomitant]
     Route: 055
  30. ULTRAM [Concomitant]
     Indication: PAIN
     Dosage: 50 MG, UNK
     Dates: start: 20091204
  31. ULTRAM [Concomitant]
     Dosage: 100 MG, AS NEEDED
     Dates: start: 20091204
  32. COUMADIN [Concomitant]
     Dosage: 1 D/F, DAILY (1/D)
     Route: 048

REACTIONS (1)
  - ARRHYTHMIA [None]
